FAERS Safety Report 23195982 (Version 1)
Quarter: 2023Q4

REPORT INFORMATION
  Report Type: Report from Study
  Country: BR (occurrence: BR)
  Receive Date: 20231117
  Receipt Date: 20231117
  Transmission Date: 20240109
  Serious: Yes (Other)
  Sender: FDA-Public Use
  Company Number: BR-ABBVIE-5493447

PATIENT
  Sex: Female
  Weight: 105 kg

DRUGS (1)
  1. SKYRIZI [Suspect]
     Active Substance: RISANKIZUMAB-RZAA
     Indication: Psoriasis
     Dosage: REASON UNKNOWN
     Route: 058
     Dates: start: 20201007

REACTIONS (3)
  - Hepatic vascular thrombosis [Recovered/Resolved]
  - Incorrect route of product administration [Unknown]
  - Osteoarthritis [Unknown]
